FAERS Safety Report 8708261 (Version 2)
Quarter: 2012Q4

REPORT INFORMATION
  Report Type: 
  Country: US (occurrence: US)
  Receive Date: 20120806
  Receipt Date: 20121120
  Transmission Date: 20130627
  Serious: Yes (Hospitalization)
  Sender: FDA-Public Use
  Company Number: US-BAYER-2012-075822

PATIENT
  Age: 22 Year
  Sex: Female

DRUGS (5)
  1. YASMIN [Suspect]
     Dosage: UNK
     Dates: start: 200506, end: 201012
  2. OCELLA [Suspect]
     Dosage: UNK
     Dates: start: 200506, end: 201012
  3. TRAMADOL [Concomitant]
     Dosage: 50 mg, UNK
  4. CEPHALEXIN [Concomitant]
     Dosage: 500 mg, UNK
  5. PROMETHAZINE [Concomitant]
     Dosage: 25 mg, UNK

REACTIONS (5)
  - Cholelithiasis [None]
  - Injury [None]
  - Pain [None]
  - Pain [None]
  - Cholecystitis chronic [None]
